FAERS Safety Report 4700116-6 (Version None)
Quarter: 2005Q2

REPORT INFORMATION
  Report Type: 
  Country: None (occurrence: None)
  Receive Date: 20050207
  Receipt Date: 20050207
  Transmission Date: 20051028
  Serious: Yes (Other)
  Sender: FDA-Public Use
  Company Number: None

PATIENT
  Age: 1 Year
  Sex: Female
  Weight: 13.2 kg

DRUGS (1)
  1. SYNALAR [Suspect]
     Indication: ICHTHYOSIS
     Dosage: BID TO SKIN
     Dates: start: 20031101

REACTIONS (2)
  - DERMATITIS CONTACT [None]
  - THERAPEUTIC RESPONSE UNEXPECTED WITH DRUG SUBSTITUTION [None]
